FAERS Safety Report 13353930 (Version 3)
Quarter: 2017Q2

REPORT INFORMATION
  Report Type: Spontaneous
  Country: US (occurrence: US)
  Receive Date: 20170321
  Receipt Date: 20170424
  Transmission Date: 20170830
  Serious: No
  Sender: FDA-Public Use
  Company Number: US-PFIZER INC-2017116475

PATIENT
  Age: 61 Year
  Sex: Female

DRUGS (2)
  1. IBUPROFEN. [Suspect]
     Active Substance: IBUPROFEN
     Indication: RHEUMATOID ARTHRITIS
     Dosage: 600 MG, 2X/DAY
  2. IBUPROFEN. [Interacting]
     Active Substance: IBUPROFEN
     Dosage: 600 MG, 4X/DAY
     Dates: start: 2005

REACTIONS (2)
  - Food interaction [Unknown]
  - Drug ineffective [Unknown]
